FAERS Safety Report 21669083 (Version 3)
Quarter: 2023Q2

REPORT INFORMATION
  Report Type: Spontaneous
  Country: BE (occurrence: None)
  Receive Date: 20221201
  Receipt Date: 20230424
  Transmission Date: 20230722
  Serious: Yes (Other)
  Sender: FDA-Public Use
  Company Number: 2022A389701

PATIENT
  Age: 62 Year
  Sex: Male
  Weight: 84 kg

DRUGS (1)
  1. FASENRA [Suspect]
     Active Substance: BENRALIZUMAB
     Indication: Asthma
     Route: 058
     Dates: start: 2019

REACTIONS (2)
  - Spontaneous haemorrhage [Unknown]
  - Hepatocellular carcinoma [Unknown]
